FAERS Safety Report 8458377-6 (Version None)
Quarter: 2012Q2

REPORT INFORMATION
  Report Type: 
  Country: None (occurrence: None)
  Receive Date: 20120622
  Receipt Date: 20120608
  Transmission Date: 20120825
  Serious: Yes (Hospitalization, Other)
  Sender: FDA-Public Use
  Company Number: FR-RANBAXY-2012RR-57320

PATIENT
  Age: 22 Year
  Sex: Female

DRUGS (2)
  1. VARNOLINE [Suspect]
     Indication: ORAL CONTRACEPTION
     Dosage: UNK
     Route: 048
     Dates: start: 20120305, end: 20120324
  2. AMOXICILLIN [Suspect]
     Indication: URINARY TRACT INFECTION
     Dosage: UNK
     Route: 048
     Dates: start: 20120319, end: 20120324

REACTIONS (2)
  - HAEMOLYTIC URAEMIC SYNDROME [None]
  - GASTROINTESTINAL DISORDER [None]
